FAERS Safety Report 22279903 (Version 1)
Quarter: 2023Q2

REPORT INFORMATION
  Report Type: Spontaneous
  Country: US (occurrence: None)
  Receive Date: 20230501
  Receipt Date: 20230501
  Transmission Date: 20230721
  Serious: Yes (Hospitalization)
  Sender: FDA-Public Use
  Company Number: None

PATIENT
  Age: 69 Year
  Sex: Male
  Weight: 55.34 kg

DRUGS (1)
  1. LEVOTHYROXINE [Suspect]
     Active Substance: LEVOTHYROXINE
     Route: 048

REACTIONS (10)
  - Seizure [None]
  - Toxicity to various agents [None]
  - Agitation [None]
  - Confusional state [None]
  - Dysuria [None]
  - Vein disorder [None]
  - Erythema [None]
  - Skin exfoliation [None]
  - Peripheral swelling [None]
  - Hyperthyroidism [None]

NARRATIVE: CASE EVENT DATE: 20230405
